FAERS Safety Report 8445448 (Version 2)
Quarter: 2013Q2

REPORT INFORMATION
  Report Type: Spontaneous
  Country: US (occurrence: US)
  Receive Date: 20120307
  Receipt Date: 20130529
  Transmission Date: 20140414
  Serious: Yes (Other)
  Sender: FDA-Public Use
  Company Number: US-BAYER-2012-020974

PATIENT
  Age: 32 Year
  Sex: Female
  Weight: 86.17 kg

DRUGS (1)
  1. YASMIN [Suspect]
     Indication: CONTRACEPTION
     Dosage: UNK
     Route: 048
     Dates: start: 200612, end: 200706

REACTIONS (9)
  - Cholecystitis chronic [None]
  - Gallbladder disorder [None]
  - Abdominal pain [None]
  - Procedural pain [None]
  - Dyspepsia [None]
  - Injury [None]
  - Emotional distress [None]
  - Anxiety [None]
  - Psychological trauma [None]
